FAERS Safety Report 8322653-8 (Version None)
Quarter: 2012Q2

REPORT INFORMATION
  Report Type: 
  Country: None (occurrence: None)
  Receive Date: 20120426
  Receipt Date: 20120413
  Transmission Date: 20120825
  Serious: Yes (Other)
  Sender: FDA-Public Use
  Company Number: 2012S1000386

PATIENT
  Age: 75 Year
  Sex: Male
  Weight: 81.65 kg

DRUGS (6)
  1. LISINOPRIL [Concomitant]
  2. HYDROCHLOROTHIAZIDE [Concomitant]
  3. PLAVIX [Concomitant]
  4. LIVALO [Suspect]
     Indication: LOW DENSITY LIPOPROTEIN INCREASED
     Dosage: 4 MG; 1X; PO
     Route: 048
     Dates: start: 20120326, end: 20120326
  5. AMLODIPINE [Concomitant]
  6. ASPIRIN [Concomitant]

REACTIONS (4)
  - CEREBROVASCULAR ACCIDENT [None]
  - MYOPATHY [None]
  - VISUAL FIELD DEFECT [None]
  - VISION BLURRED [None]
